FAERS Safety Report 5495594-1 (Version None)
Quarter: 2007Q4

REPORT INFORMATION
  Report Type: 
  Country: None (occurrence: None)
  Receive Date: 20071015
  Receipt Date: 20061019
  Transmission Date: 20080405
  Serious: Yes (Other)
  Sender: FDA-Public Use
  Company Number: S06-USA-04372-01

PATIENT
  Sex: Male

DRUGS (3)
  1. LEXAPRO [Suspect]
  2. RISPERDAL [Concomitant]
  3. ZOLOFT [Concomitant]

REACTIONS (1)
  - MANIA [None]
